FAERS Safety Report 5261393-9 (Version None)
Quarter: 2007Q1

REPORT INFORMATION
  Report Type: 
  Country: None (occurrence: None)
  Receive Date: 20070307
  Receipt Date: 20070220
  Transmission Date: 20070707
  Serious: Yes (Hospitalization)
  Sender: FDA-Public Use
  Company Number: 2007BI003968

PATIENT
  Sex: Female

DRUGS (2)
  1. AVONEX [Suspect]
     Indication: MULTIPLE SCLEROSIS
     Dosage: 30 UG; QW; IM
     Route: 030
     Dates: start: 19970101, end: 20060101
  2. AVONEX [Suspect]
     Indication: MULTIPLE SCLEROSIS
     Dosage: 30 UG;QW;IM
     Route: 030
     Dates: start: 20060201, end: 20070101

REACTIONS (6)
  - BACK DISORDER [None]
  - FALL [None]
  - HAND FRACTURE [None]
  - INTERVERTEBRAL DISC PROTRUSION [None]
  - LOWER LIMB FRACTURE [None]
  - NERVE COMPRESSION [None]
